FAERS Safety Report 5311562-4 (Version None)
Quarter: 2007Q2

REPORT INFORMATION
  Report Type: 
  Country: None (occurrence: None)
  Receive Date: 20070430
  Receipt Date: 20070423
  Transmission Date: 20071010
  Serious: Yes (Disabling)
  Sender: FDA-Public Use
  Company Number: SE-GLAXOSMITHKLINE-B0468559A

PATIENT
  Age: 69 Year
  Sex: Male

DRUGS (1)
  1. SPEKTRAMOX [Suspect]
     Dosage: 1.5G PER DAY
     Route: 048
     Dates: start: 20060711, end: 20060801

REACTIONS (5)
  - BLOOD BILIRUBIN INCREASED [None]
  - JAUNDICE [None]
  - LIVER DISORDER [None]
  - NAUSEA [None]
  - PRURITUS [None]
